FAERS Safety Report 6677152-6 (Version None)
Quarter: 2010Q2

REPORT INFORMATION
  Report Type: 
  Country: None (occurrence: None)
  Receive Date: 20100412
  Receipt Date: 20100407
  Transmission Date: 20101027
  Serious: Yes (Death)
  Sender: FDA-Public Use
  Company Number: US-GILEAD-2010-0028186

PATIENT
  Sex: Male
  Weight: 88.53 kg

DRUGS (12)
  1. LETAIRIS [Suspect]
     Indication: PULMONARY ARTERIAL HYPERTENSION
     Route: 048
     Dates: start: 20100208
  2. WARFARIN SODIUM [Concomitant]
  3. TORSEMIDE [Concomitant]
  4. METOLAZONE [Concomitant]
  5. DILTIAZEM HCL [Concomitant]
  6. ULORIC [Concomitant]
  7. HUMALOG [Concomitant]
  8. ALLOPURINOL [Concomitant]
  9. PREDNISONE [Concomitant]
  10. ZEMPLAR [Concomitant]
  11. PRILOSEC [Concomitant]
  12. BENEFIBER [Concomitant]

REACTIONS (2)
  - RENAL FAILURE [None]
  - RESPIRATORY FAILURE [None]
